FAERS Safety Report 13621946 (Version 1)
Quarter: 2017Q2

REPORT INFORMATION
  Report Type: Spontaneous
  Country: US (occurrence: US)
  Receive Date: 20170607
  Receipt Date: 20170607
  Transmission Date: 20170830
  Serious: No
  Sender: FDA-Public Use
  Company Number: US-ROCHE-1870951

PATIENT
  Sex: Female

DRUGS (1)
  1. XELODA [Suspect]
     Active Substance: CAPECITABINE
     Indication: NEOPLASM MALIGNANT
     Dosage: FOR 2 WEEKS AND 1 WEEK BREAK
     Route: 048
     Dates: start: 20161123

REACTIONS (2)
  - Decreased appetite [Unknown]
  - Fatigue [Unknown]
